FAERS Safety Report 12648076 (Version 2)
Quarter: 2016Q3

REPORT INFORMATION
  Report Type: Spontaneous
  Country: BR (occurrence: BR)
  Receive Date: 20160812
  Receipt Date: 20160826
  Transmission Date: 20161109
  Serious: Yes (Hospitalization, Other)
  Sender: FDA-Public Use
  Company Number: BR-TORRENT-00003528

PATIENT
  Age: 74 Year
  Sex: Female
  Weight: 60 kg

DRUGS (8)
  1. PANTOPRAZOLE [Concomitant]
     Active Substance: PANTOPRAZOLE SODIUM
     Indication: GASTRIC DISORDER
     Dosage: ONCE DAILY/ ORAL
     Route: 048
     Dates: start: 2012
  2. XARELTO [Concomitant]
     Active Substance: RIVAROXABAN
     Indication: CONGENITAL CARDIOVASCULAR ANOMALY
     Dosage: DOSE NUMBER IS UNKNOWN/ ONCE DAILY/ ORAL
     Route: 048
     Dates: start: 201607
  3. EPZ [Suspect]
     Active Substance: DONEPEZIL HYDROCHLORIDE
     Indication: DEMENTIA ALZHEIMER^S TYPE
     Dosage: ONCE DAILY/ ORAL
     Route: 048
     Dates: start: 2006
  4. VENLIFT OD [Suspect]
     Active Substance: VENLAFAXINE HYDROCHLORIDE
     Indication: DEMENTIA ALZHEIMER^S TYPE
     Dosage: ONCE DAILY/ ORAL
     Route: 048
     Dates: start: 2006
  5. BENICAR ANLO [Concomitant]
     Active Substance: AMLODIPINE BESYLATE\OLMESARTAN MEDOXOMIL
     Indication: CONGENITAL CARDIOVASCULAR ANOMALY
     Dosage: DOSE NUMBER IS UNKNOWN/ ONCE DAILY/ ORAL
     Route: 048
     Dates: start: 2012
  6. RITMONORM [Concomitant]
     Active Substance: PROPAFENONE HYDROCHLORIDE
     Indication: CONGENITAL CARDIOVASCULAR ANOMALY
     Dosage: DOSE NUMBER IS UNKNOWN/ ONCE DAILY/ ORAL
     Route: 048
     Dates: start: 201607
  7. VITAMIN B12 [Concomitant]
     Active Substance: CYANOCOBALAMIN
     Indication: LIVER DISORDER
     Dosage: DOSE NUMBER IS UNKNOWN/ ONCE DAILY/ ORAL
     Route: 048
     Dates: start: 201607
  8. GLIFAGE XR [Concomitant]
     Active Substance: METFORMIN HYDROCHLORIDE
     Indication: TYPE 1 DIABETES MELLITUS
     Dosage: ONCE DAILY/ ORAL
     Route: 048
     Dates: start: 2012

REACTIONS (6)
  - Syncope [Recovered/Resolved]
  - Dizziness [Recovered/Resolved]
  - Head injury [Recovered/Resolved]
  - Asthenia [Recovered/Resolved]
  - Seizure [Recovered/Resolved]
  - Off label use [Not Recovered/Not Resolved]

NARRATIVE: CASE EVENT DATE: 2006
